FAERS Safety Report 6547459-1 (Version None)
Quarter: 2010Q1

REPORT INFORMATION
  Report Type: 
  Country: None (occurrence: None)
  Receive Date: 20100122
  Receipt Date: 20100118
  Transmission Date: 20100710
  Serious: Yes (Other)
  Sender: FDA-Public Use
  Company Number: US-ROXANE LABORATORIES, INC.-2010-RO-00051RO

PATIENT
  Sex: Female

DRUGS (2)
  1. OXCARBAZEPINE [Suspect]
     Indication: PARTIAL SEIZURES
  2. LEVETIRACETAM [Concomitant]
     Indication: PARTIAL SEIZURES

REACTIONS (2)
  - ABNORMAL BEHAVIOUR [None]
  - CONVULSION [None]
